FAERS Safety Report 4989115-7 (Version None)
Quarter: 2006Q2

REPORT INFORMATION
  Report Type: 
  Country: None (occurrence: None)
  Receive Date: 20060425
  Receipt Date: 20060411
  Transmission Date: 20061013
  Serious: Yes (Death, Other)
  Sender: FDA-Public Use
  Company Number: 8015651

PATIENT
  Sex: Male

DRUGS (1)
  1. KEPPRA [Suspect]
     Indication: GRAND MAL CONVULSION
     Dosage: PO
     Route: 048

REACTIONS (2)
  - PANCYTOPENIA [None]
  - SEPSIS [None]
